FAERS Safety Report 4418220-9 (Version None)
Quarter: 2004Q3

REPORT INFORMATION
  Report Type: 
  Country: None (occurrence: None)
  Receive Date: 20040809
  Receipt Date: 20040108
  Transmission Date: 20050211
  Serious: No
  Sender: FDA-Public Use
  Company Number: US-GLAXOSMITHKLINE-A0492011A

PATIENT
  Age: 54 Year
  Sex: Female

DRUGS (5)
  1. PAXIL CR [Suspect]
     Indication: DEPRESSION
     Dosage: 12.5MG PER DAY
     Route: 048
     Dates: end: 20040102
  2. PHENTERMINE [Concomitant]
  3. THYROID TAB [Concomitant]
  4. HORMONES [Concomitant]
  5. CORTISONE SHOT [Concomitant]

REACTIONS (3)
  - AGITATION [None]
  - NERVOUSNESS [None]
  - WEIGHT INCREASED [None]
